FAERS Safety Report 6581254-2 (Version None)
Quarter: 2010Q1

REPORT INFORMATION
  Report Type: 
  Country: None (occurrence: None)
  Receive Date: 20100203
  Receipt Date: 20100121
  Transmission Date: 20100710
  Serious: Yes (Death, Life-Threatening, Hospitalization)
  Sender: FDA-Public Use
  Company Number: FR-2010-0129

PATIENT
  Age: 68 Year
  Sex: Male

DRUGS (2)
  1. NAVELBINE [Suspect]
     Dosage: 45 MG IV
     Route: 042
     Dates: start: 20060310, end: 20060803
  2. CARBOPLATIN [Suspect]
     Dosage: 666 MG IV
     Route: 042
     Dates: start: 20060310, end: 20060803

REACTIONS (3)
  - ACUTE MYELOID LEUKAEMIA [None]
  - BEDRIDDEN [None]
  - INFECTION [None]
